FAERS Safety Report 14459464 (Version 1)
Quarter: 2018Q1

REPORT INFORMATION
  Report Type: Spontaneous
  Country: US (occurrence: US)
  Receive Date: 20180130
  Receipt Date: 20180130
  Transmission Date: 20180509
  Serious: No
  Sender: FDA-Public Use
  Company Number: US-ACORDA-ACO_136556_2017

PATIENT
  Sex: Female
  Weight: 90.7 kg

DRUGS (5)
  1. AMPYRA [Suspect]
     Active Substance: DALFAMPRIDINE
     Indication: GAIT DISTURBANCE
     Dosage: 10 MG, UNK
     Route: 048
  2. AMPYRA [Suspect]
     Active Substance: DALFAMPRIDINE
     Dosage: 10 MG, UNK
     Route: 048
  3. COPAXONE [Suspect]
     Active Substance: GLATIRAMER ACETATE
     Indication: MULTIPLE SCLEROSIS
     Dosage: UNK UNK, 3X/WK
     Route: 065
     Dates: start: 2010
  4. BACLOFEN. [Concomitant]
     Active Substance: BACLOFEN
     Indication: PRODUCT USED FOR UNKNOWN INDICATION
     Dosage: 10 MG, UNK
     Route: 065
     Dates: start: 2011
  5. NUEDEXTA [Concomitant]
     Active Substance: DEXTROMETHORPHAN HYDROBROMIDE\QUINIDINE SULFATE
     Indication: PRODUCT USED FOR UNKNOWN INDICATION
     Dosage: 20/10 UNK, UNK
     Route: 065

REACTIONS (12)
  - Blood alkaline phosphatase increased [Unknown]
  - Peroneal nerve palsy [Unknown]
  - Aspartate aminotransferase increased [Unknown]
  - Urinary tract infection [Recovered/Resolved]
  - Feeling abnormal [Unknown]
  - Dizziness [Recovered/Resolved]
  - Feeling drunk [Unknown]
  - Drug intolerance [Unknown]
  - Central nervous system lesion [Recovered/Resolved]
  - Back disorder [Unknown]
  - Alanine aminotransferase increased [Unknown]
  - Gait disturbance [Unknown]
